FAERS Safety Report 5296268-2 (Version None)
Quarter: 2007Q2

REPORT INFORMATION
  Report Type: 
  Country: None (occurrence: None)
  Receive Date: 20070413
  Receipt Date: 20070405
  Transmission Date: 20071010
  Serious: Yes (Death)
  Sender: FDA-Public Use
  Company Number: US-JNJFOC-20070401637

PATIENT
  Age: 3 Month
  Sex: Male

DRUGS (2)
  1. ACETAMINOPHEN/DEXTROMETHORPHAN/PSEUDOEPHEDRINE/DOXYLAMINE [Suspect]
     Indication: COUGH
  2. ACETAMINOPHEN/DEXTROMETHORPHAN/PSEUDOEPHEDRINE/DOXYLAMINE [Suspect]
     Indication: NASOPHARYNGITIS

REACTIONS (2)
  - ANOXIC ENCEPHALOPATHY [None]
  - DRUG TOXICITY [None]
